FAERS Safety Report 15538280 (Version 2)
Quarter: 2018Q4

REPORT INFORMATION
  Report Type: Spontaneous
  Country: IE (occurrence: IE)
  Receive Date: 20181022
  Receipt Date: 20181105
  Transmission Date: 20190205
  Serious: Yes (Hospitalization, Other)
  Sender: FDA-Public Use
  Company Number: IE-NAPPMUNDI-GBR-2018-0060726

PATIENT
  Sex: Male
  Weight: 3.6 kg

DRUGS (3)
  1. BUPRENORPHINE. [Suspect]
     Active Substance: BUPRENORPHINE
     Dosage: 12 MG, UNK
     Route: 064
  2. PETHIDINE [Suspect]
     Active Substance: MEPERIDINE
     Indication: ANALGESIC THERAPY
     Dosage: UNK
     Route: 064
  3. BUPRENORPHINE. [Suspect]
     Active Substance: BUPRENORPHINE
     Indication: SUBSTANCE ABUSE
     Dosage: 16 MG, ONCE DAILY DURING DELIVERY
     Route: 064

REACTIONS (4)
  - Foetal exposure during pregnancy [Unknown]
  - Eye infection bacterial [Unknown]
  - Postmature baby [Unknown]
  - Drug withdrawal syndrome neonatal [Recovered/Resolved]
